FAERS Safety Report 5649736-5 (Version None)
Quarter: 2008Q1

REPORT INFORMATION
  Report Type: 
  Country: None (occurrence: None)
  Receive Date: 20080304
  Receipt Date: 20080227
  Transmission Date: 20080703
  Serious: Yes (Hospitalization)
  Sender: FDA-Public Use
  Company Number: BE-BOEHRINGER INGELHEIM GMBH, GERMANY-2008-BL-00052BL

PATIENT
  Sex: Female

DRUGS (4)
  1. VIRAMUNE [Suspect]
     Indication: HIV INFECTION
     Route: 048
  2. VIRAMUNE [Suspect]
     Route: 048
     Dates: start: 20080226, end: 20080226
  3. COMBIVIR [Suspect]
     Indication: HIV INFECTION
     Dosage: 150/300MG PER TABLET
     Route: 048
  4. COMBIVIR [Suspect]
     Dosage: 150/300MG PER TABLET
     Route: 048
     Dates: start: 20080226, end: 20080226

REACTIONS (1)
  - OVERDOSE [None]
